FAERS Safety Report 8574870-X (Version None)
Quarter: 2012Q3

REPORT INFORMATION
  Report Type: 
  Country: None (occurrence: None)
  Receive Date: 20120807
  Receipt Date: 20120725
  Transmission Date: 20120928
  Serious: Yes (Hospitalization)
  Sender: FDA-Public Use
  Company Number: IN-ELI_LILLY_AND_COMPANY-IN201207008892

PATIENT
  Sex: Male

DRUGS (1)
  1. HUMULIN R [Suspect]
     Indication: DIABETES MELLITUS
     Dosage: 40 IU, UNKNOWN
     Route: 058
     Dates: start: 20120722

REACTIONS (1)
  - BLOOD GLUCOSE INCREASED [None]
